FAERS Safety Report 4448751-7 (Version None)
Quarter: 2004Q3

REPORT INFORMATION
  Report Type: 
  Country: None (occurrence: None)
  Receive Date: 20040909
  Receipt Date: 20040909
  Transmission Date: 20050211
  Serious: Yes (Other)
  Sender: FDA-Public Use
  Company Number: None

PATIENT
  Age: 40 Year
  Sex: Female

DRUGS (9)
  1. AMBIEN [Suspect]
     Indication: SOMNOLENCE
     Dosage: 5MG AT HS PO
     Route: 048
     Dates: start: 20040525
  2. PROZAC [Suspect]
     Dosage: 20 MG QD PO
     Route: 048
     Dates: start: 20040523
  3. ROCEPHIN [Concomitant]
  4. PROTONIX [Concomitant]
  5. SYNTHROID [Concomitant]
  6. MS CONTIN [Concomitant]
  7. ZITHROMAX [Concomitant]
  8. PHENERGAN HCL [Concomitant]
  9. PREDNISONE [Concomitant]

REACTIONS (4)
  - CONFUSIONAL STATE [None]
  - HALLUCINATION [None]
  - PSYCHOMOTOR HYPERACTIVITY [None]
  - RESTLESSNESS [None]
